FAERS Safety Report 9322778 (Version 1)
Quarter: 2013Q2

REPORT INFORMATION
  Report Type: Report from Study
  Country: US (occurrence: US)
  Receive Date: 20130601
  Receipt Date: 20130601
  Transmission Date: 20140414
  Serious: Yes (Hospitalization)
  Sender: FDA-Public Use
  Company Number: US-ROCHE-1207297

PATIENT
  Age: 77 Year
  Sex: Female
  Weight: 70.37 kg

DRUGS (15)
  1. ZELBORAF [Suspect]
     Indication: METASTATIC MALIGNANT MELANOMA
     Route: 048
     Dates: start: 20130321
  2. ZELBORAF [Suspect]
     Dosage: DOSE INCREASED
     Route: 048
     Dates: start: 20130321, end: 20130517
  3. BUMEX [Concomitant]
     Route: 065
  4. SIMVASTATIN [Concomitant]
     Dosage: DAILY
     Route: 065
  5. FENTANYL PATCH [Concomitant]
     Route: 065
  6. KEFLEX [Concomitant]
     Dosage: DAILY
     Route: 065
  7. ZOFRAN [Concomitant]
  8. SENOKOT [Concomitant]
  9. FLONASE [Concomitant]
  10. PROTONIX (OMEPRAZOLE) [Concomitant]
     Dosage: DAILY
     Route: 065
  11. LEVOTHYROXINE [Concomitant]
     Dosage: DAILY
     Route: 065
  12. ADVAIR [Concomitant]
     Dosage: DAILY
     Route: 065
  13. BENAZEPRIL [Concomitant]
     Route: 065
  14. MIRALAX [Concomitant]
     Dosage: DAILY
     Route: 065
  15. BETHANECHOL [Concomitant]
     Route: 065

REACTIONS (10)
  - Chest pain [Recovered/Resolved]
  - Arrhythmia [Recovered/Resolved]
  - Cardioversion [Recovered/Resolved]
  - Nausea [Not Recovered/Not Resolved]
  - Rash [Recovering/Resolving]
  - Local swelling [Recovering/Resolving]
  - Swelling face [Recovering/Resolving]
  - Kidney infection [Recovered/Resolved]
  - Blister [Recovering/Resolving]
  - Ear infection [Recovered/Resolved]
